FAERS Safety Report 5179886-1 (Version None)
Quarter: 2006Q4

REPORT INFORMATION
  Report Type: 
  Country: None (occurrence: None)
  Receive Date: 20061211
  Receipt Date: 20061129
  Transmission Date: 20070319
  Serious: Yes (Death, Hospitalization, Congenital Anomaly)
  Sender: FDA-Public Use
  Company Number: 2006107270

PATIENT
  Sex: Female
  Weight: 3.61 kg

DRUGS (2)
  1. SERTRALINE [Suspect]
     Indication: DEPRESSION
     Dosage: 50 MG, (50 MG, 1 IN D), ORAL
     Route: 048
     Dates: start: 20060323, end: 20060914
  2. FLUOXETINE [Suspect]
     Indication: PANIC REACTION
     Dosage: 20 MG
     Dates: start: 20060914

REACTIONS (8)
  - APGAR SCORE LOW [None]
  - BRAIN DAMAGE [None]
  - CAESAREAN SECTION [None]
  - DRUG EXPOSURE DURING PREGNANCY [None]
  - ENCEPHALITIS [None]
  - NEONATAL ASPHYXIA [None]
  - NEONATAL DISORDER [None]
  - PLACENTA PRAEVIA [None]
